FAERS Safety Report 21604739 (Version 2)
Quarter: 2023Q2

REPORT INFORMATION
  Report Type: Report from Study
  Country: US (occurrence: US)
  Receive Date: 20221116
  Receipt Date: 20230425
  Transmission Date: 20230722
  Serious: No
  Sender: FDA-Public Use
  Company Number: US-ABBVIE-22K-163-4442197-00

PATIENT
  Sex: Female

DRUGS (5)
  1. SKYRIZI [Suspect]
     Active Substance: RISANKIZUMAB-RZAA
     Indication: Psoriasis
     Route: 058
     Dates: start: 20211221, end: 202203
  2. SKYRIZI [Suspect]
     Active Substance: RISANKIZUMAB-RZAA
     Route: 058
     Dates: end: 20220414
  3. VITAMINS [Concomitant]
     Active Substance: VITAMINS
     Indication: Vitamin supplementation
     Dates: start: 202110
  4. PRENTAL VITAMIN [Concomitant]
     Indication: Pregnancy
     Dates: start: 202110, end: 20230127
  5. PRENTAL VITAMIN [Concomitant]
     Indication: Pregnancy
     Dates: start: 202110

REACTIONS (5)
  - Maternal exposure during pregnancy [Unknown]
  - Blood pressure increased [Not Recovered/Not Resolved]
  - Anaemia [Recovered/Resolved]
  - Live birth [Unknown]
  - Psoriasis [Unknown]

NARRATIVE: CASE EVENT DATE: 20220501
